FAERS Safety Report 21775492 (Version 4)
Quarter: 2023Q2

REPORT INFORMATION
  Report Type: Report from Study
  Country: US (occurrence: US)
  Receive Date: 20221226
  Receipt Date: 20230413
  Transmission Date: 20230721
  Serious: Yes (Other)
  Sender: FDA-Public Use
  Company Number: US-ABBVIE-4247730

PATIENT
  Age: 61 Year
  Sex: Female
  Weight: 54.431 kg

DRUGS (6)
  1. IMBRUVICA [Suspect]
     Active Substance: IBRUTINIB
     Indication: Marginal zone lymphoma
     Route: 048
     Dates: start: 20211001
  2. IMBRUVICA [Suspect]
     Active Substance: IBRUTINIB
     Indication: Marginal zone lymphoma
     Route: 048
     Dates: start: 20211015, end: 20230302
  3. IMBRUVICA [Suspect]
     Active Substance: IBRUTINIB
     Indication: Marginal zone lymphoma
     Route: 048
     Dates: start: 20230305
  4. Vitamin 1D3 [Concomitant]
     Indication: Product used for unknown indication
     Route: 048
  5. PROBIOTICS NOS [Concomitant]
     Active Substance: PROBIOTICS NOS
     Indication: Product used for unknown indication
     Route: 048
  6. VITAMIN B12 [Concomitant]
     Active Substance: CYANOCOBALAMIN
     Indication: Product used for unknown indication
     Route: 048

REACTIONS (13)
  - Ovarian cyst [Unknown]
  - Skin papilloma [Recovering/Resolving]
  - Blood urine present [Unknown]
  - Menopause [Unknown]
  - Back pain [Unknown]
  - Postmenopause [Unknown]
  - Nephrolithiasis [Recovering/Resolving]
  - Ovarian cyst [Unknown]
  - Fatigue [Unknown]
  - Post procedural haemorrhage [Unknown]
  - Oophorectomy [Recovered/Resolved]
  - Abdominal pain [Unknown]
  - Salpingectomy [Recovered/Resolved]

NARRATIVE: CASE EVENT DATE: 20220909
